FAERS Safety Report 10233736 (Version 2)
Quarter: 2014Q2

REPORT INFORMATION
  Report Type: Report from Study
  Country: US (occurrence: US)
  Receive Date: 20140612
  Receipt Date: 20140612
  Transmission Date: 20141212
  Serious: Yes (Hospitalization)
  Sender: FDA-Public Use
  Company Number: US-MYLANLABS-2014S1010483

PATIENT
  Age: 15 Year
  Sex: Male
  Weight: 73 kg

DRUGS (3)
  1. AMNESTEEM CAPSULES [Suspect]
     Indication: ACNE
     Dates: start: 20131114, end: 201404
  2. CLARAVIS [Suspect]
     Indication: ACNE
     Dates: end: 201404
  3. AMNESTEEM CAPSULES [Suspect]
     Indication: ACNE
     Dates: start: 201403, end: 201404

REACTIONS (2)
  - Erythema nodosum [Not Recovered/Not Resolved]
  - Cellulitis [Not Recovered/Not Resolved]
